FAERS Safety Report 10257274 (Version 2)
Quarter: 2014Q3

REPORT INFORMATION
  Report Type: Spontaneous
  Country: US (occurrence: None)
  Receive Date: 20140620
  Receipt Date: 20140930
  Transmission Date: 20150326
  Serious: Yes (Other)
  Sender: FDA-Public Use
  Company Number: VAL_03173_2014

PATIENT
  Sex: Female

DRUGS (8)
  1. DIOVAN HCT [Suspect]
     Active Substance: HYDROCHLOROTHIAZIDE\VALSARTAN
     Indication: HYPERTENSION
     Dosage: 1 DF (VLS 160 MG/HYDR 12.5 MG, FREQUENCY UNSPECIFIED)
     Dates: start: 200803
  2. HYDROCHLOROTHIAZIDE 25 MG TABLETS [Suspect]
     Active Substance: HYDROCHLOROTHIAZIDE
     Indication: HYPERTENSION
     Dates: start: 200709
  3. LOPRESSOR [Suspect]
     Active Substance: METOPROLOL TARTRATE
     Indication: ANGIOGRAM
     Dosage: GIVEN 50 MG BEFORE STARTING CT
  4. JANUVIA [Concomitant]
     Active Substance: SITAGLIPTIN PHOSPHATE
  5. ACTOS [Concomitant]
     Active Substance: PIOGLITAZONE HYDROCHLORIDE
  6. HYDROCHLOROTHIAZIDE 25 MG TABLETS [Suspect]
     Active Substance: HYDROCHLOROTHIAZIDE
     Indication: JOINT SWELLING
     Dates: start: 200709
  7. TOPROL XL [Concomitant]
     Active Substance: METOPROLOL SUCCINATE
  8. DIOVAN [Suspect]
     Active Substance: VALSARTAN
     Indication: HYPERTENSION
     Dosage: 1 DF (80 MG, FREQUENCY UNSPECIFIED)
     Dates: start: 2007

REACTIONS (18)
  - Blood potassium decreased [None]
  - Dizziness [None]
  - Weight decreased [None]
  - Feeling drunk [None]
  - Muscle spasms [None]
  - Nephrolithiasis [None]
  - Lichen planus [None]
  - Blood glucose abnormal [None]
  - Wrong technique in drug usage process [None]
  - Heart rate abnormal [None]
  - Blood pressure increased [None]
  - Gait disturbance [None]
  - Urine output increased [None]
  - Dry mouth [None]
  - Dry eye [None]
  - Diarrhoea [None]
  - Confusional state [None]
  - Pollakiuria [None]
